FAERS Safety Report 7681835-9 (Version None)
Quarter: 2011Q3

REPORT INFORMATION
  Report Type: 
  Country: None (occurrence: None)
  Receive Date: 20110813
  Receipt Date: 20100209
  Transmission Date: 20111222
  Serious: Yes (Other)
  Sender: FDA-Public Use
  Company Number: US-AMGEN-QUU391545

PATIENT
  Age: 29 Year
  Sex: Male

DRUGS (10)
  1. VALACYCLOVIR HYDROCHLORIDE [Concomitant]
     Dosage: UNK UNK, UNK
  2. MULTIPLE VITAMINS [Concomitant]
     Dosage: UNK UNK, UNK
  3. NPLATE [Suspect]
     Indication: IDIOPATHIC THROMBOCYTOPENIC PURPURA
     Dosage: 2 A?G/KG, UNK
     Dates: start: 20091125
  4. TACROLIMUS [Concomitant]
     Dosage: UNK UNK, UNK
  5. PENICILLIN [Concomitant]
     Dosage: UNK UNK, UNK
  6. MAGNESIUM [Concomitant]
     Dosage: UNK UNK, UNK
  7. PREDNISONE [Concomitant]
     Dosage: UNK UNK, UNK
  8. ESOMEPRAZOLE MAGNESIUM [Concomitant]
     Dosage: UNK UNK, UNK
  9. FOLIC ACID [Concomitant]
     Dosage: UNK UNK, UNK
  10. DAPSONE [Concomitant]
     Dosage: UNK UNK, UNK

REACTIONS (1)
  - PLATELET COUNT DECREASED [None]
